FAERS Safety Report 8812729 (Version 2)
Quarter: 2012Q4

REPORT INFORMATION
  Report Type: Report from Study
  Country: US (occurrence: US)
  Receive Date: 20120927
  Receipt Date: 20121103
  Transmission Date: 20130627
  Serious: Yes (Other)
  Sender: FDA-Public Use
  Company Number: US-US-EMD SERONO, INC.-7162943

PATIENT
  Age: 43 Year
  Sex: Female
  Weight: 112 kg

DRUGS (4)
  1. REBIF [Suspect]
     Indication: MULTIPLE SCLEROSIS
     Route: 058
     Dates: start: 20070305
  2. TYLENOL EXTRA STRENGTH [Concomitant]
     Indication: PAIN PROPHYLAXIS
  3. BACTRIM [Concomitant]
     Indication: URINARY TRACT INFECTION
     Dates: start: 20120629, end: 20120713
  4. MOTRIN [Concomitant]
     Indication: PRODUCT USED FOR UNKNOWN INDICATION

REACTIONS (6)
  - Rectal adenocarcinoma [Not Recovered/Not Resolved]
  - Temperature intolerance [Unknown]
  - Asthenia [Unknown]
  - Fatigue [Unknown]
  - Depression [Unknown]
  - Rash [Unknown]
